FAERS Safety Report 9376339 (Version 1)
Quarter: 2013Q3

REPORT INFORMATION
  Report Type: Spontaneous
  Country: CN (occurrence: CN)
  Receive Date: 20130701
  Receipt Date: 20130701
  Transmission Date: 20140515
  Serious: Yes (Other)
  Sender: FDA-Public Use
  Company Number: CN-JNJFOC-20130613097

PATIENT
  Sex: Male

DRUGS (2)
  1. SPORANOX [Suspect]
     Indication: ONYCHOMYCOSIS
     Route: 048
     Dates: start: 20111014, end: 20111220
  2. TERBINAFINE [Suspect]
     Indication: ONYCHOMYCOSIS
     Route: 048

REACTIONS (8)
  - Carbohydrate antigen 19-9 increased [Recovered/Resolved]
  - Aspartate aminotransferase increased [Recovered/Resolved]
  - Alanine aminotransferase increased [Recovered/Resolved]
  - Abdominal discomfort [Recovering/Resolving]
  - Gallbladder disorder [Recovering/Resolving]
  - Cell marker increased [Recovered/Resolved]
  - Diarrhoea [Recovering/Resolving]
  - Fatigue [Recovering/Resolving]
